FAERS Safety Report 9030556 (Version 2)
Quarter: 2013Q1

REPORT INFORMATION
  Report Type: Spontaneous
  Country: US (occurrence: US)
  Receive Date: 20130122
  Receipt Date: 20130221
  Transmission Date: 20140127
  Serious: No
  Sender: FDA-Public Use
  Company Number: US-TEVA-381507USA

PATIENT
  Sex: Female

DRUGS (2)
  1. ENJUVIA [Suspect]
  2. OMEPRAZOLE [Concomitant]
     Dosage: DAILY

REACTIONS (2)
  - Drug ineffective [Unknown]
  - Hot flush [Recovering/Resolving]
